FAERS Safety Report 4375655-0 (Version None)
Quarter: 2004Q2

REPORT INFORMATION
  Report Type: 
  Country: None (occurrence: None)
  Receive Date: 20040610
  Receipt Date: 20040505
  Transmission Date: 20050107
  Serious: Yes (Hospitalization)
  Sender: FDA-Public Use
  Company Number: JP-GLAXOSMITHKLINE-B0332055A

PATIENT
  Age: 39 Year
  Sex: Male

DRUGS (4)
  1. LAMIVUDINE [Suspect]
     Indication: HIV INFECTION
     Dosage: 150MG TWICE PER DAY
     Route: 048
     Dates: start: 19990429, end: 19991210
  2. ZERIT [Suspect]
     Indication: HIV INFECTION
     Dosage: 40MG TWICE PER DAY
     Route: 048
     Dates: start: 19990429, end: 19991210
  3. INDINAVIR [Suspect]
     Indication: HIV INFECTION
     Dosage: 800MG THREE TIMES PER DAY
     Route: 048
     Dates: start: 19990429, end: 19991210
  4. BAKTAR [Concomitant]
     Indication: INFECTION PROPHYLAXIS
     Dosage: 960MG TWICE PER DAY
     Route: 048
     Dates: start: 19990429

REACTIONS (8)
  - CHEST PAIN [None]
  - COUGH [None]
  - DYSPNOEA [None]
  - HISTOLOGY ABNORMAL [None]
  - IMMUNE RECONSTITUTION SYNDROME [None]
  - PNEUMOCYSTIS CARINII PNEUMONIA [None]
  - PRODUCTIVE COUGH [None]
  - PYREXIA [None]
